FAERS Safety Report 17859012 (Version 1)
Quarter: 2020Q2

REPORT INFORMATION
  Report Type: Spontaneous
  Country: US (occurrence: US)
  Receive Date: 20200604
  Receipt Date: 20200604
  Transmission Date: 20200714
  Serious: No
  Sender: FDA-Public Use
  Company Number: US-AUROBINDO-AUR-APL-2020-010577

PATIENT
  Sex: Male

DRUGS (1)
  1. GLIPIZIDE EXTENDED-RELEASE TABLETS 2.5 MG [Suspect]
     Active Substance: GLIPIZIDE
     Indication: TYPE 2 DIABETES MELLITUS
     Dosage: TWO TIMES A DAY (SINCE LAST TWO MONTTHS)
     Route: 065

REACTIONS (6)
  - Hyperhidrosis [Unknown]
  - Fatigue [Unknown]
  - Heart rate increased [Unknown]
  - Blood creatinine increased [Unknown]
  - Blood glucose decreased [Unknown]
  - Hypoglycaemia [Unknown]
